FAERS Safety Report 8775623 (Version 1)
Quarter: 2012Q4

REPORT INFORMATION
  Report Type: 
  Country: US (occurrence: US)
  Receive Date: 20120909
  Receipt Date: 20120909
  Transmission Date: 20130627
  Serious: No
  Sender: FDA-Public Use
  Company Number: US-009507513-1209USA002681

PATIENT

DRUGS (1)
  1. DULERA [Suspect]
     Indication: ASTHMA
     Dosage: inhaler  200 microgram/ 5 microgram 2 puffs
     Dates: start: 201207

REACTIONS (1)
  - Candidiasis [Recovered/Resolved]
